FAERS Safety Report 4912569-9 (Version None)
Quarter: 2006Q1

REPORT INFORMATION
  Report Type: 
  Country: None (occurrence: None)
  Receive Date: 20060215
  Receipt Date: 20060208
  Transmission Date: 20060701
  Serious: Yes (Other)
  Sender: FDA-Public Use
  Company Number: US-GLAXOSMITHKLINE-A0592896A

PATIENT
  Sex: Female

DRUGS (7)
  1. AVANDIA [Suspect]
     Indication: DIABETES MELLITUS NON-INSULIN-DEPENDENT
     Dosage: 8MG PER DAY
     Route: 048
     Dates: start: 20040101
  2. PREVACID [Suspect]
     Indication: ILL-DEFINED DISORDER
     Route: 065
  3. GLUCOPHAGE [Concomitant]
  4. PROCARDIA XL [Concomitant]
  5. TRENTAL [Concomitant]
  6. CYMBALTA [Concomitant]
  7. PREVACID [Concomitant]

REACTIONS (9)
  - ABDOMINAL PAIN UPPER [None]
  - APATHY [None]
  - DIABETES MELLITUS INADEQUATE CONTROL [None]
  - FATIGUE [None]
  - FOOD CRAVING [None]
  - HYPOGLYCAEMIA [None]
  - ILL-DEFINED DISORDER [None]
  - INCREASED APPETITE [None]
  - THERAPEUTIC RESPONSE UNEXPECTED [None]
